FAERS Safety Report 12147753 (Version 6)
Quarter: 2016Q2

REPORT INFORMATION
  Report Type: Spontaneous
  Country: GB (occurrence: GB)
  Receive Date: 20160304
  Receipt Date: 20160407
  Transmission Date: 20160815
  Serious: Yes (Death, Disabling, Other)
  Sender: FDA-Public Use
  Company Number: GB-ELI_LILLY_AND_COMPANY-GB201603000702

PATIENT
  Age: 77 Year
  Sex: Male

DRUGS (3)
  1. ERBITUX [Suspect]
     Active Substance: CETUXIMAB
     Dosage: 500 MG, UNK
     Route: 042
  2. ERBITUX [Suspect]
     Active Substance: CETUXIMAB
     Dosage: 500 MG, UNKNOWN
     Route: 042
  3. ERBITUX [Suspect]
     Active Substance: CETUXIMAB
     Indication: SQUAMOUS CELL CARCINOMA OF HEAD AND NECK
     Dosage: 500 MG, UNKNOWN
     Route: 042

REACTIONS (15)
  - Decreased appetite [Unknown]
  - Urinary incontinence [Unknown]
  - Headache [Not Recovered/Not Resolved]
  - Tremor [Unknown]
  - Scab [Not Recovered/Not Resolved]
  - Fatigue [Unknown]
  - Lower respiratory tract infection [Unknown]
  - Death [Fatal]
  - Oral candidiasis [Recovering/Resolving]
  - Depression [Unknown]
  - Rash [Not Recovered/Not Resolved]
  - Dyspnoea [Not Recovered/Not Resolved]
  - Asthenia [Unknown]
  - Skin graft infection [Unknown]
  - Constipation [Unknown]

NARRATIVE: CASE EVENT DATE: 20160329
